FAERS Safety Report 7583813-7 (Version None)
Quarter: 2011Q2

REPORT INFORMATION
  Report Type: 
  Country: None (occurrence: None)
  Receive Date: 20110630
  Receipt Date: 20110623
  Transmission Date: 20111010
  Serious: Yes (Death)
  Sender: FDA-Public Use
  Company Number: US-ROCHE-786155

PATIENT
  Age: 63 Year
  Sex: Male

DRUGS (3)
  1. GEMCITABINE [Suspect]
     Indication: TRANSITIONAL CELL CARCINOMA
     Dosage: OVER 30 MIN ON DAYS 1 AND 8 FOR CYCLE 1-6, LAST DOSE: 08 JUNE 2011
     Route: 042
     Dates: start: 20110601
  2. CISPLATIN [Suspect]
     Indication: TRANSITIONAL CELL CARCINOMA
     Dosage: ON DAY 1, CYCLE 1
     Route: 042
     Dates: start: 20110601
  3. BLINDED BEVACIZUMAB [Suspect]
     Indication: TRANSITIONAL CELL CARCINOMA
     Dosage: DOSE: BLINDED, CYCLE 1, DAY 1. LAST DOSE PRIOR TO SAE: 01 JUNE 2011
     Route: 042
     Dates: start: 20110601

REACTIONS (7)
  - COLONIC PSEUDO-OBSTRUCTION [None]
  - SUDDEN DEATH [None]
  - PLATELET COUNT DECREASED [None]
  - ILEUS [None]
  - CONSTIPATION [None]
  - INTESTINAL DILATATION [None]
  - WHITE BLOOD CELL COUNT DECREASED [None]
